FAERS Safety Report 9014321 (Version 1)
Quarter: 2013Q1

REPORT INFORMATION
  Report Type: Spontaneous
  Country: ZA (occurrence: ZA)
  Receive Date: 20130115
  Receipt Date: 20130115
  Transmission Date: 20140127
  Serious: Yes (Other)
  Sender: FDA-Public Use
  Company Number: ZA-PFIZER INC-2013012209

PATIENT
  Sex: Female

DRUGS (1)
  1. CHAMPIX [Suspect]
     Dosage: UNK
     Route: 048
     Dates: start: 20121025

REACTIONS (11)
  - Suicidal ideation [Unknown]
  - Depression [Unknown]
  - Abnormal behaviour [Unknown]
  - Mood swings [Unknown]
  - Family stress [Unknown]
  - Asocial behaviour [Unknown]
  - Irritability [Unknown]
  - Emotional disorder [Unknown]
  - Nausea [Unknown]
  - Hyperphagia [Unknown]
  - Abdominal distension [Unknown]
